FAERS Safety Report 13749038 (Version 1)
Quarter: 2017Q3

REPORT INFORMATION
  Report Type: Spontaneous
  Country: US (occurrence: US)
  Receive Date: 20170712
  Receipt Date: 20170712
  Transmission Date: 20171127
  Serious: No
  Sender: FDA-Public Use
  Company Number: None

PATIENT
  Age: 50 Year
  Sex: Female
  Weight: 109.8 kg

DRUGS (15)
  1. CRESTOR [Concomitant]
     Active Substance: ROSUVASTATIN CALCIUM
  2. LYRICA [Concomitant]
     Active Substance: PREGABALIN
  3. PROTONIX [Concomitant]
     Active Substance: PANTOPRAZOLE SODIUM
  4. MEDTRONIC PACEMAKER [Concomitant]
  5. ZOFRAN [Concomitant]
     Active Substance: ONDANSETRON HYDROCHLORIDE
  6. CALCIUM WITH VITAMIN D [Concomitant]
     Active Substance: CALCIUM\VITAMIN D
  7. FLONASE [Concomitant]
     Active Substance: FLUTICASONE PROPIONATE
  8. TOPROL XL [Concomitant]
     Active Substance: METOPROLOL SUCCINATE
  9. NORCO [Concomitant]
     Active Substance: ACETAMINOPHEN\HYDROCODONE BITARTRATE
  10. ASPIRIN. [Concomitant]
     Active Substance: ASPIRIN
  11. ASTELIN SPRAY [Concomitant]
  12. LORZONE [Concomitant]
     Active Substance: CHLORZOXAZONE
  13. CLINDAMYCIN. [Suspect]
     Active Substance: CLINDAMYCIN
     Indication: TOOTH ABSCESS
     Dosage: ?          OTHER STRENGTH:MG;QUANTITY:1 CAPSULE(S);?
     Route: 048
     Dates: start: 20170710, end: 20170712
  14. WELLBUTRIN [Concomitant]
     Active Substance: BUPROPION HYDROCHLORIDE
  15. MORPHINE [Concomitant]
     Active Substance: MORPHINE

REACTIONS (4)
  - Oral discomfort [None]
  - Throat irritation [None]
  - Gingival discomfort [None]
  - Tongue discomfort [None]

NARRATIVE: CASE EVENT DATE: 20170712
